FAERS Safety Report 20593516 (Version 4)
Quarter: 2022Q4

REPORT INFORMATION
  Report Type: Spontaneous
  Country: US (occurrence: US)
  Receive Date: 20220315
  Receipt Date: 20221103
  Transmission Date: 20230112
  Serious: No
  Sender: FDA-Public Use
  Company Number: US-BIOGEN-2022BI01103748

PATIENT
  Sex: Female

DRUGS (1)
  1. TYSABRI [Suspect]
     Active Substance: NATALIZUMAB
     Indication: Multiple sclerosis
     Route: 050
     Dates: start: 20120809

REACTIONS (6)
  - Illness [Unknown]
  - Pain [Unknown]
  - Muscle twitching [Unknown]
  - Tremor [Unknown]
  - Multiple sclerosis [Unknown]
  - Vomiting [Unknown]
